FAERS Safety Report 4528535-1 (Version None)
Quarter: 2004Q4

REPORT INFORMATION
  Report Type: 
  Country: None (occurrence: None)
  Receive Date: 20041216
  Receipt Date: 20040923
  Transmission Date: 20050328
  Serious: No
  Sender: FDA-Public Use
  Company Number: US-BRISTOL-MYERS SQUIBB COMPANY-12710596

PATIENT
  Age: 78 Year
  Sex: Female
  Weight: 63 kg

DRUGS (6)
  1. CHOLESTYRAMINE [Suspect]
     Indication: PARASITIC INFECTION INTESTINAL
     Dosage: DOSAGE FORM = SCOOPS
     Route: 048
     Dates: start: 19890101
  2. ATENOLOL [Concomitant]
  3. LEVOXYL [Concomitant]
  4. DITROPAN [Concomitant]
  5. TOPAMAX [Concomitant]
  6. DIAZEPAM [Concomitant]

REACTIONS (1)
  - DRUG INEFFECTIVE [None]
